FAERS Safety Report 17187218 (Version 1)
Quarter: 2019Q4

REPORT INFORMATION
  Report Type: Spontaneous
  Country: US (occurrence: US)
  Receive Date: 20191220
  Receipt Date: 20191220
  Transmission Date: 20200122
  Serious: No
  Sender: FDA-Public Use
  Company Number: US-BAUSCH-BL-2019-063898

PATIENT
  Sex: Female

DRUGS (1)
  1. FLUOROURACIL CREAM 5% [Suspect]
     Active Substance: FLUOROURACIL
     Indication: NEOPLASM PROPHYLAXIS
     Route: 061
     Dates: start: 20191114

REACTIONS (1)
  - Inappropriate schedule of product administration [Unknown]
